FAERS Safety Report 9943594 (Version 2)
Quarter: 2014Q1

REPORT INFORMATION
  Report Type: Report from Study
  Country: US (occurrence: US)
  Receive Date: 20140303
  Receipt Date: 20140303
  Transmission Date: 20141002
  Serious: No
  Sender: FDA-Public Use
  Company Number: US-ABBVIE-12P-163-0999809-00

PATIENT
  Age: 43 Year
  Sex: Male

DRUGS (5)
  1. HUMIRA [Suspect]
     Indication: CROHN^S DISEASE
     Dates: start: 20121006, end: 20121006
  2. HUMIRA [Suspect]
     Dates: start: 20121020, end: 20121020
  3. HUMIRA [Suspect]
  4. PENTASA [Concomitant]
     Indication: PRODUCT USED FOR UNKNOWN INDICATION
  5. AZAFAM [Concomitant]
     Indication: CROHN^S DISEASE
     Dosage: 225MG DAILY

REACTIONS (1)
  - Injection site pain [Recovered/Resolved]
